FAERS Safety Report 4458244-9 (Version None)
Quarter: 2004Q3

REPORT INFORMATION
  Report Type: 
  Country: None (occurrence: None)
  Receive Date: 20040924
  Receipt Date: 20040914
  Transmission Date: 20050211
  Serious: Yes (Hospitalization)
  Sender: FDA-Public Use
  Company Number: JP-JNJFOC-20040904002

PATIENT
  Age: 92 Year
  Sex: Male

DRUGS (6)
  1. OFLOCET [Suspect]
     Indication: DRUG USE FOR UNKNOWN INDICATION
     Route: 042
     Dates: start: 20040524, end: 20040526
  2. ROCEPHIN [Concomitant]
     Route: 042
     Dates: start: 20040524, end: 20040531
  3. STILNOX [Concomitant]
     Route: 049
  4. GLUCOPHAGE [Concomitant]
     Route: 049
     Dates: end: 20040523
  5. DAONIL [Concomitant]
     Route: 049
     Dates: end: 20040523
  6. OGAST [Concomitant]

REACTIONS (1)
  - GOUT [None]
